FAERS Safety Report 14914051 (Version 1)
Quarter: 2018Q2

REPORT INFORMATION
  Report Type: Spontaneous
  Country: GB (occurrence: GB)
  Receive Date: 20180518
  Receipt Date: 20180518
  Transmission Date: 20180711
  Serious: Yes (Other)
  Sender: FDA-Public Use
  Company Number: GB-PFIZER INC-2018196038

PATIENT
  Age: 24 Year
  Sex: Female
  Weight: 65 kg

DRUGS (1)
  1. DEPO-PROVERA [Suspect]
     Active Substance: MEDROXYPROGESTERONE ACETATE
     Indication: CONTRACEPTION
     Dosage: UNK
     Route: 051
     Dates: start: 20171007, end: 20171218

REACTIONS (4)
  - Hypertension [Unknown]
  - Migraine [Not Recovered/Not Resolved]
  - Dizziness [Unknown]
  - Ear infection [Unknown]

NARRATIVE: CASE EVENT DATE: 20171007
